FAERS Safety Report 8778419 (Version 1)
Quarter: 2012Q4

REPORT INFORMATION
  Report Type: 
  Country: US (occurrence: US)
  Receive Date: 20120912
  Receipt Date: 20120912
  Transmission Date: 20130627
  Serious: Yes (Death)
  Sender: FDA-Public Use
  Company Number: US-GLAXOSMITHKLINE-A0992929A

PATIENT
  Age: 66 Year
  Sex: Female

DRUGS (12)
  1. TYKERB [Suspect]
     Indication: NEOPLASM MALIGNANT
     Dosage: 1250MG Per day
     Route: 048
     Dates: start: 20120322
  2. OXYCONTIN [Concomitant]
  3. AMBIEN [Concomitant]
  4. COREG [Concomitant]
  5. LASIX [Concomitant]
  6. KLOR-CON [Concomitant]
  7. CLARITIN [Concomitant]
  8. COLACE [Concomitant]
  9. PROVENTIL [Concomitant]
  10. PERCOCET [Concomitant]
  11. GAS-X [Concomitant]
  12. TYLENOL [Concomitant]

REACTIONS (2)
  - Cardiac failure [Fatal]
  - Neoplasm malignant [Fatal]
